FAERS Safety Report 17821437 (Version 1)
Quarter: 2020Q2

REPORT INFORMATION
  Report Type: Spontaneous
  Country: US (occurrence: US)
  Receive Date: 20200525
  Receipt Date: 20200525
  Transmission Date: 20200714
  Serious: No
  Sender: FDA-Public Use
  Company Number: US-009507513-2005USA007094

PATIENT
  Age: 72 Year
  Sex: Female

DRUGS (3)
  1. ZOCOR [Concomitant]
     Active Substance: SIMVASTATIN
     Dosage: UNK
     Route: 048
  2. SINEMET [Suspect]
     Active Substance: CARBIDOPA\LEVODOPA
     Dosage: UNK, THREE TIMES DAILY
     Route: 048
  3. AMANTADINE. [Suspect]
     Active Substance: AMANTADINE HYDROCHLORIDE
     Indication: DYSKINESIA
     Dosage: 274 MG, 1X/DAY AT BEDTIME
     Route: 048
     Dates: start: 20200324, end: 2020

REACTIONS (4)
  - Chest discomfort [Unknown]
  - Vomiting [Unknown]
  - Nausea [Unknown]
  - Constipation [Unknown]

NARRATIVE: CASE EVENT DATE: 20200324
